FAERS Safety Report 8976720 (Version 3)
Quarter: 2013Q1

REPORT INFORMATION
  Report Type: Spontaneous
  Country: US (occurrence: US)
  Receive Date: 20121220
  Receipt Date: 20130117
  Transmission Date: 20140127
  Serious: Yes (Other)
  Sender: FDA-Public Use
  Company Number: US-TEVA-376281USA

PATIENT
  Age: 59 Year
  Sex: Male
  Weight: 72.5 kg

DRUGS (6)
  1. AMPHETAMINE W/DEXTROAMPHETAMINE [Suspect]
     Dates: start: 2012
  2. VIIBRYD (VILAZODONE HYDROCHLORIDE) [Suspect]
     Indication: DEPRESSION
     Dates: start: 201201, end: 2012
  3. VIIBRYD (VILAZODONE HYDROCHLORIDE) [Suspect]
     Dosage: 40 MILLIGRAM DAILY;
     Route: 048
     Dates: start: 201201, end: 201301
  4. VIIBRYD (VILAZODONE HYDROCHLORIDE) [Suspect]
     Dosage: 20 MILLIGRAM DAILY;
     Dates: start: 201301
  5. BUPROPION HYDROCHLORIDE [Concomitant]
  6. TRAZODONE [Concomitant]
     Indication: INSOMNIA
     Dosage: 300 MILLIGRAM DAILY;
     Route: 048

REACTIONS (7)
  - Rectal haemorrhage [Recovering/Resolving]
  - Suicidal ideation [Not Recovered/Not Resolved]
  - Decreased appetite [Recovered/Resolved]
  - Weight decreased [Recovered/Resolved]
  - Paraesthesia [Recovered/Resolved]
  - Insomnia [Not Recovered/Not Resolved]
  - Anxiety [Not Recovered/Not Resolved]
